FAERS Safety Report 10167307 (Version 1)
Quarter: 2014Q2

REPORT INFORMATION
  Report Type: Spontaneous
  Country: US (occurrence: None)
  Receive Date: 20140508
  Receipt Date: 20140508
  Transmission Date: 20141212
  Serious: Yes (Other)
  Sender: FDA-Public Use
  Company Number: 2014SA057252

PATIENT
  Age: 83 Year
  Sex: Male

DRUGS (1)
  1. ACT ANTICAVITY FLUORIDE CINNAMON [Suspect]
     Indication: PRODUCT USED FOR UNKNOWN INDICATION

REACTIONS (1)
  - Dementia [None]
